FAERS Safety Report 16222676 (Version 1)
Quarter: 2019Q2

REPORT INFORMATION
  Report Type: Spontaneous
  Country: US (occurrence: US)
  Receive Date: 20190419
  Receipt Date: 20190419
  Transmission Date: 20190711
  Serious: Yes (Hospitalization)
  Sender: FDA-Public Use
  Company Number: None

PATIENT
  Age: 56 Year
  Sex: Female

DRUGS (14)
  1. FISH OIL [Concomitant]
     Active Substance: FISH OIL
  2. VALIUM [Concomitant]
     Active Substance: DIAZEPAM
  3. ST JOSEPH CHW [Concomitant]
  4. ZOLOFT [Concomitant]
     Active Substance: SERTRALINE HYDROCHLORIDE
  5. VALTREX [Concomitant]
     Active Substance: VALACYCLOVIR HYDROCHLORIDE
  6. HALICON [Concomitant]
  7. FLONASE [Concomitant]
     Active Substance: FLUTICASONE PROPIONATE
  8. MELATONIN [Concomitant]
     Active Substance: MELATONIN
  9. CLOBEX [Concomitant]
     Active Substance: CLOBETASOL PROPIONATE
  10. PERCOCET [Concomitant]
     Active Substance: ACETAMINOPHEN\OXYCODONE HYDROCHLORIDE
  11. TRAZODONE [Concomitant]
     Active Substance: TRAZODONE HYDROCHLORIDE
  12. CALCIPOTRIEN [Concomitant]
  13. VECTICAL [Concomitant]
     Active Substance: CALCITRIOL
  14. COSENTYX [Suspect]
     Active Substance: SECUKINUMAB
     Indication: PROSTATIC SPECIFIC ANTIGEN
     Dosage: ?          OTHER FREQUENCY:EVERY FOUR WEEKS;?
     Route: 058
     Dates: start: 20180307

REACTIONS (1)
  - Hospitalisation [None]
